FAERS Safety Report 17798649 (Version 1)
Quarter: 2020Q2

REPORT INFORMATION
  Report Type: Spontaneous
  Country: US (occurrence: US)
  Receive Date: 20200518
  Receipt Date: 20200518
  Transmission Date: 20200714
  Serious: Yes (Other)
  Sender: FDA-Public Use
  Company Number: None

PATIENT
  Age: 56 Year
  Sex: Female
  Weight: 90 kg

DRUGS (1)
  1. DOXYXYCLINE HYCLATE [Suspect]
     Active Substance: DOXYCYCLINE HYCLATE
     Dosage: ?          QUANTITY:1 TABLET(S);?
     Route: 048
     Dates: start: 20200514, end: 20200514

REACTIONS (6)
  - Pallor [None]
  - Aptyalism [None]
  - Tremor [None]
  - Flushing [None]
  - Dysphagia [None]
  - Heart rate increased [None]

NARRATIVE: CASE EVENT DATE: 20200514
